FAERS Safety Report 7682107-9 (Version None)
Quarter: 2011Q3

REPORT INFORMATION
  Report Type: 
  Country: None (occurrence: None)
  Receive Date: 20110805
  Receipt Date: 20110725
  Transmission Date: 20111222
  Serious: Yes (Life-Threatening, Hospitalization)
  Sender: FDA-Public Use
  Company Number: DSA_45449_2011

PATIENT
  Age: 81 Year
  Sex: Male

DRUGS (6)
  1. AMIODARONE HCL [Suspect]
     Indication: ATRIAL FIBRILLATION
     Dosage: 200 MG QD ORAL, 600 MG WEEKLY ORAL
     Route: 048
     Dates: start: 20090219, end: 20100109
  2. ALLOPURINOL [Concomitant]
  3. FUROSEMIDE [Concomitant]
  4. METFORMIN [Concomitant]
  5. PARAPRES [Concomitant]
  6. DINISOR RETARD-DILTIAZEM HYDROCHLORIDE 120 MG [Suspect]
     Indication: ATRIAL FIBRILLATION
     Dosage: 120 MG QD ORAL
     Route: 048
     Dates: end: 20100109

REACTIONS (5)
  - ATRIOVENTRICULAR BLOCK [None]
  - BLOOD PRESSURE DECREASED [None]
  - BUNDLE BRANCH BLOCK RIGHT [None]
  - BRADYCARDIA [None]
  - DRUG INTERACTION [None]
